FAERS Safety Report 24558695 (Version 5)
Quarter: 2024Q4

REPORT INFORMATION
  Report Type: Spontaneous
  Country: US (occurrence: US)
  Receive Date: 20241029
  Receipt Date: 20241202
  Transmission Date: 20250115
  Serious: No
  Sender: BIOGEN
  Company Number: US-BIOGEN-2024BI01284645

PATIENT
  Sex: Male

DRUGS (2)
  1. VUMERITY [Suspect]
     Active Substance: DIROXIMEL FUMARATE
     Indication: Multiple sclerosis
     Dosage: START DATE ALSO REPORTED AS 20-AUG-2024 AND 25-SEP-2024?231MG CAPSULE BY MOUTH TWICE A DAY, FOR 7...
     Route: 050
     Dates: start: 20240923, end: 2024
  2. VUMERITY [Suspect]
     Active Substance: DIROXIMEL FUMARATE
     Route: 050
     Dates: start: 2024

REACTIONS (13)
  - Product dose omission in error [Unknown]
  - Inappropriate schedule of product administration [Unknown]
  - Abdominal discomfort [Not Recovered/Not Resolved]
  - Multiple sclerosis [Not Recovered/Not Resolved]
  - Tinnitus [Not Recovered/Not Resolved]
  - Chest pain [Not Recovered/Not Resolved]
  - Fatigue [Unknown]
  - Gastrooesophageal reflux disease [Unknown]
  - Eructation [Unknown]
  - Taste disorder [Unknown]
  - Dyspepsia [Unknown]
  - Feeling hot [Recovered/Resolved]
  - Vomiting [Recovered/Resolved]

NARRATIVE: CASE EVENT DATE: 20240101
